FAERS Safety Report 4501977-6 (Version None)
Quarter: 2004Q4

REPORT INFORMATION
  Report Type: 
  Country: None (occurrence: None)
  Receive Date: 20041109
  Receipt Date: 20041027
  Transmission Date: 20050328
  Serious: Yes (Death, Hospitalization, Other)
  Sender: FDA-Public Use
  Company Number: JP_040904568

PATIENT
  Age: 64 Year
  Sex: Male

DRUGS (7)
  1. GEMZAR [Suspect]
     Indication: PANCREATIC CARCINOMA
     Dosage: 1500 MG OTHER
     Dates: start: 20040323, end: 20040831
  2. PREDNISOLONE [Concomitant]
  3. OXYCONTIN [Concomitant]
  4. LOXONIN (LOXOPROFEN SODIUM) [Concomitant]
  5. MARZULENE S [Concomitant]
  6. FAMOTIDINE [Concomitant]
  7. FERROMIA (FERROUS CITRATE) [Concomitant]

REACTIONS (9)
  - BLOOD FIBRINOGEN DECREASED [None]
  - DECREASED APPETITE [None]
  - DISSEMINATED INTRAVASCULAR COAGULATION [None]
  - HAEMOPTYSIS [None]
  - HYPOXIA [None]
  - PROTHROMBIN TIME PROLONGED [None]
  - PULMONARY ALVEOLAR HAEMORRHAGE [None]
  - PYREXIA [None]
  - TRANSIENT ISCHAEMIC ATTACK [None]
